FAERS Safety Report 8006119-0 (Version None)
Quarter: 2011Q4

REPORT INFORMATION
  Report Type: 
  Country: None (occurrence: None)
  Receive Date: 20111226
  Receipt Date: 20111216
  Transmission Date: 20120403
  Serious: Yes (Hospitalization)
  Sender: FDA-Public Use
  Company Number: BE-PFIZER INC-2011307312

PATIENT
  Age: 41 Year
  Sex: Female
  Weight: 58.6 kg

DRUGS (10)
  1. EPIRUBICIN HYDROCHLORIDE [Suspect]
     Indication: BREAST CANCER METASTATIC
     Dosage: UNK
     Dates: start: 20080101
  2. DOXORUBICIN HCL [Suspect]
     Indication: BREAST CANCER METASTATIC
     Dosage: UNK
     Dates: start: 20080215
  3. EFFEXOR [Concomitant]
     Indication: PSYCHOTHERAPY
     Dosage: UNK
     Dates: start: 20080101
  4. CYCLOPHOSPHAMIDE [Suspect]
     Indication: BREAST CANCER METASTATIC
     Dosage: UNK
     Dates: start: 20080101
  5. CP-751,871 [Suspect]
     Indication: BREAST CANCER
     Dosage: 1420 MG, CYCLIC: EVERY 3 WEEKS
     Route: 042
     Dates: start: 20070521, end: 20071015
  6. TRAMADOL HCL [Concomitant]
     Indication: PAIN
     Dosage: UNK
     Dates: start: 20080215
  7. EXEMESTANE [Suspect]
     Indication: BREAST CANCER
     Dosage: 25 MG, 1X/DAY
     Route: 048
     Dates: start: 20070521, end: 20071108
  8. FLUOROURACIL [Suspect]
     Indication: BREAST CANCER METASTATIC
     Dosage: UNK
     Dates: start: 20080101
  9. LITICAN [Concomitant]
     Indication: NAUSEA
     Dosage: UNK
     Dates: start: 20080101
  10. NEUPOGEN [Concomitant]
     Indication: PROPHYLAXIS
     Dosage: UNK
     Dates: start: 20080220

REACTIONS (1)
  - FEBRILE NEUTROPENIA [None]
